FAERS Safety Report 5497884-5 (Version None)
Quarter: 2007Q4

REPORT INFORMATION
  Report Type: 
  Country: None (occurrence: None)
  Receive Date: 20071018
  Receipt Date: 20060914
  Transmission Date: 20080405
  Serious: Yes (Other)
  Sender: FDA-Public Use
  Company Number: 2006112947

PATIENT
  Age: 51 Year
  Sex: Female

DRUGS (2)
  1. GABAPENTIN [Suspect]
  2. LYRICA [Suspect]
     Indication: PAIN
     Dosage: 150 MG (150 MG, 1 IN 1 D)

REACTIONS (6)
  - EYE SWELLING [None]
  - HYPOAESTHESIA [None]
  - LACRIMATION INCREASED [None]
  - OEDEMA PERIPHERAL [None]
  - SOMNOLENCE [None]
  - WEIGHT INCREASED [None]
